FAERS Safety Report 6219875-9 (Version None)
Quarter: 2009Q2

REPORT INFORMATION
  Report Type: 
  Country: None (occurrence: None)
  Receive Date: 20090609
  Receipt Date: 20090528
  Transmission Date: 20091009
  Serious: Yes (Hospitalization)
  Sender: FDA-Public Use
  Company Number: GB-ROCHE-635156

PATIENT
  Sex: Female
  Weight: 75.4 kg

DRUGS (13)
  1. CAPECITABINE [Suspect]
     Indication: BREAST CANCER
     Dosage: ROUTE AND FORM AS PER PROTOCOL
     Route: 048
     Dates: start: 20081203
  2. CAPECITABINE [Suspect]
     Route: 048
  3. EPIRUBICIN [Suspect]
     Indication: BREAST CANCER
     Dosage: ROUTE AND FORM AS PER PROTOCOL
     Route: 042
     Dates: start: 20081203
  4. EPIRUBICIN [Suspect]
     Route: 042
  5. PARACETAMOL [Concomitant]
     Dosage: FREQUENCY REPORTED AS QDS
  6. ALBUTEROL [Concomitant]
  7. NAPROXEN [Concomitant]
  8. NAPROXEN [Concomitant]
  9. SERETIDE [Concomitant]
  10. BECONASE [Concomitant]
  11. ORAMORPH SR [Concomitant]
     Dosage: FREQUENCY:PRN
  12. OMEPRAZOLE [Concomitant]
  13. MST [Concomitant]

REACTIONS (3)
  - DYSPNOEA [None]
  - PLEURITIC PAIN [None]
  - PULMONARY EMBOLISM [None]
